FAERS Safety Report 10347902 (Version 4)
Quarter: 2015Q1

REPORT INFORMATION
  Report Type: Spontaneous
  Country: US (occurrence: None)
  Receive Date: 20140725
  Receipt Date: 20150120
  Transmission Date: 20150720
  Serious: Yes (Other)
  Sender: FDA-Public Use
  Company Number: UNT-2014-003677

PATIENT
  Age: 83 Year
  Sex: Male
  Weight: 73 kg

DRUGS (4)
  1. XARELTO [Concomitant]
     Active Substance: RIVAROXABAN
  2. WARFARIN [Concomitant]
     Active Substance: WARFARIN
  3. REMODULIN [Suspect]
     Active Substance: TREPROSTINIL
     Indication: PULMONARY ARTERIAL HYPERTENSION
     Route: 058
     Dates: start: 20140501, end: 20140814
  4. LETAIRIS [Concomitant]
     Active Substance: AMBRISENTAN

REACTIONS (8)
  - Coronary artery disease [None]
  - Pulmonary hypertension [None]
  - Dyspnoea [None]
  - Condition aggravated [None]
  - Atrial fibrillation [None]
  - Cardiac failure congestive [None]
  - Bladder cancer [None]
  - Fatigue [None]

NARRATIVE: CASE EVENT DATE: 2014
